FAERS Safety Report 15956508 (Version 1)
Quarter: 2019Q1

REPORT INFORMATION
  Report Type: Spontaneous
  Country: US (occurrence: US)
  Receive Date: 20190213
  Receipt Date: 20190213
  Transmission Date: 20190417
  Serious: Yes (Other)
  Sender: FDA-Public Use
  Company Number: None

PATIENT
  Age: 54 Year
  Sex: Male
  Weight: 74.25 kg

DRUGS (1)
  1. EPCLUSA [Suspect]
     Active Substance: SOFOSBUVIR\VELPATASVIR
     Indication: HEPATITIS C
     Route: 048

REACTIONS (10)
  - Confusional state [None]
  - Dizziness [None]
  - Memory impairment [None]
  - Asthenia [None]
  - Heart rate decreased [None]
  - Dyspnoea [None]
  - Presyncope [None]
  - Chest pain [None]
  - Haematochezia [None]
  - Fatigue [None]

NARRATIVE: CASE EVENT DATE: 20190123
